FAERS Safety Report 9559283 (Version 1)
Quarter: 2013Q3

REPORT INFORMATION
  Report Type: Spontaneous
  Country: US (occurrence: None)
  Receive Date: 20130925
  Receipt Date: 20130925
  Transmission Date: 20140515
  Serious: Yes (Death)
  Sender: FDA-Public Use
  Company Number: UTC-038206

PATIENT
  Age: 81 Year
  Sex: Female

DRUGS (1)
  1. TYVASO (6 MICROGRAM, AEROSOL FOR INHALATION) (TREPROSTINIL SODIUM) [Suspect]
     Indication: PULMONARY ARTERIAL HYPERTENSION
     Dosage: 144 MCG (24 MCG, 1 IN 4 HR), INHALATION
     Route: 055
     Dates: start: 20130625, end: 2013

REACTIONS (1)
  - Death [None]
